FAERS Safety Report 4826081-9 (Version None)
Quarter: 2005Q4

REPORT INFORMATION
  Report Type: 
  Country: None (occurrence: None)
  Receive Date: 20051014
  Receipt Date: 20050706
  Transmission Date: 20060501
  Serious: No
  Sender: FDA-Public Use
  Company Number: 2005SP001791

PATIENT
  Age: 67 Year
  Sex: Female
  Weight: 63.5036 kg

DRUGS (5)
  1. LUNESTA [Suspect]
     Indication: INSOMNIA
     Dosage: 2 MG HS ORAL; 4 MG HS ORAL; 2 MG HS ORAL
     Route: 048
     Dates: start: 20050701, end: 20050701
  2. LUNESTA [Suspect]
     Indication: INSOMNIA
     Dosage: 2 MG HS ORAL; 4 MG HS ORAL; 2 MG HS ORAL
     Route: 048
     Dates: start: 20050701, end: 20050701
  3. LUNESTA [Suspect]
     Indication: INSOMNIA
     Dosage: 2 MG HS ORAL; 4 MG HS ORAL; 2 MG HS ORAL
     Route: 048
     Dates: start: 20050701, end: 20050701
  4. PRAVACHOL [Concomitant]
  5. CALCIUM GLUCONATE [Concomitant]

REACTIONS (1)
  - PRURITUS [None]
